FAERS Safety Report 11174326 (Version 1)
Quarter: 2015Q2

REPORT INFORMATION
  Report Type: Report from Study
  Country: GB (occurrence: GB)
  Receive Date: 20150609
  Receipt Date: 20150609
  Transmission Date: 20150821
  Serious: Yes (Hospitalization, Other)
  Sender: FDA-Public Use
  Company Number: GB-BIOGENIDEC-2015BI075964

PATIENT
  Age: 58 Year
  Sex: Female

DRUGS (7)
  1. BIIB017 [Suspect]
     Active Substance: PEGINTERFERON BETA-1A
     Indication: MULTIPLE SCLEROSIS
     Route: 058
     Dates: start: 20130110
  2. TRAMADOL [Concomitant]
     Active Substance: TRAMADOL
     Indication: PAIN
     Dates: end: 20150601
  3. CARBAMAZEPINE. [Concomitant]
     Active Substance: CARBAMAZEPINE
     Indication: TRIGEMINAL NEURALGIA
  4. AMANTADINE [Concomitant]
     Active Substance: AMANTADINE
     Indication: FATIGUE
  5. CARBAMAZEPINE. [Concomitant]
     Active Substance: CARBAMAZEPINE
     Indication: TRIGEMINAL NEURALGIA
  6. GABAPENTIN. [Concomitant]
     Active Substance: GABAPENTIN
     Indication: NEURALGIA
     Route: 048
     Dates: start: 20150501, end: 20150601
  7. OROMORPH [Concomitant]
     Indication: NEURALGIA
     Route: 048

REACTIONS (3)
  - Multiple sclerosis [Not Recovered/Not Resolved]
  - Dehydration [Not Recovered/Not Resolved]
  - Facial neuralgia [Not Recovered/Not Resolved]

NARRATIVE: CASE EVENT DATE: 20150528
